FAERS Safety Report 7812042-4 (Version None)
Quarter: 2011Q4

REPORT INFORMATION
  Report Type: 
  Country: None (occurrence: None)
  Receive Date: 20111013
  Receipt Date: 20110930
  Transmission Date: 20120403
  Serious: Yes (Death, Hospitalization, Other)
  Sender: FDA-Public Use
  Company Number: JP-ROCHE-704897

PATIENT
  Sex: Male
  Weight: 59 kg

DRUGS (4)
  1. PACLITAXEL [Concomitant]
     Dosage: DOSAGE: UNCERTAIN
     Route: 041
     Dates: start: 20100126, end: 20100223
  2. WARFARIN SODIUM [Concomitant]
     Route: 048
     Dates: start: 20091228, end: 20100314
  3. CARBOPLATIN [Concomitant]
     Dosage: DOSAGE :UNCERTAIN
     Route: 041
     Dates: start: 20100126, end: 20100223
  4. AVASTIN [Suspect]
     Indication: LUNG CANCER METASTATIC
     Route: 041
     Dates: start: 20100126, end: 20100223

REACTIONS (3)
  - HAEMOTHORAX [None]
  - DISEASE PROGRESSION [None]
  - HAEMOPTYSIS [None]
